FAERS Safety Report 5993110-9 (Version None)
Quarter: 2008Q4

REPORT INFORMATION
  Report Type: 
  Country: None (occurrence: None)
  Receive Date: 20081212
  Receipt Date: 20081203
  Transmission Date: 20090506
  Serious: Yes (Other)
  Sender: FDA-Public Use
  Company Number: DE-WYE-H07122208

PATIENT
  Sex: Male

DRUGS (1)
  1. CORDAREX [Suspect]
     Dosage: 200 MG (FREQUENCY UNSPECIFIED)
     Route: 048

REACTIONS (3)
  - DEPOSIT EYE [None]
  - FEELING HOT [None]
  - VISUAL ACUITY REDUCED [None]
